FAERS Safety Report 5757941-2 (Version None)
Quarter: 2008Q2

REPORT INFORMATION
  Report Type: 
  Country: None (occurrence: None)
  Receive Date: 20080602
  Receipt Date: 20080602
  Transmission Date: 20081010
  Serious: Yes (Other)
  Sender: FDA-Public Use
  Company Number: None

PATIENT
  Age: 5 Year
  Sex: Male
  Weight: 111.1313 kg

DRUGS (1)
  1. MIRAPEX [Suspect]
     Indication: RESTLESS LEGS SYNDROME
     Dosage: 1.5 TO 3.0 DAILY PO
     Route: 048
     Dates: start: 20030915, end: 20080531

REACTIONS (17)
  - ABNORMAL BEHAVIOUR [None]
  - BANKRUPTCY [None]
  - BINGE EATING [None]
  - CATAPLEXY [None]
  - COGNITIVE DISORDER [None]
  - CONFUSIONAL STATE [None]
  - DISTURBANCE IN ATTENTION [None]
  - GAMBLING [None]
  - INSOMNIA [None]
  - JOB DISSATISFACTION [None]
  - LIBIDO INCREASED [None]
  - LOSS OF EMPLOYMENT [None]
  - MEMORY IMPAIRMENT [None]
  - NARCOLEPSY [None]
  - NIGHTMARE [None]
  - SLEEP APNOEA SYNDROME [None]
  - WEIGHT INCREASED [None]
